FAERS Safety Report 8756724 (Version 3)
Quarter: 2014Q1

REPORT INFORMATION
  Report Type: Spontaneous
  Country: US (occurrence: US)
  Receive Date: 20120828
  Receipt Date: 20140107
  Transmission Date: 20141002
  Serious: Yes (Other)
  Sender: FDA-Public Use
  Company Number: US-BAYER-2012-086612

PATIENT
  Age: 35 Year
  Sex: Female
  Weight: 53 kg

DRUGS (4)
  1. BEYAZ [Suspect]
     Dosage: UNK
     Dates: start: 20111016, end: 20111228
  2. PROBIOTICS [Concomitant]
     Dosage: UNK, ONCE DAILY
  3. PROBIOTICS [Concomitant]
     Dosage: 2 PILLS DAILY
     Dates: start: 201110
  4. ASCORBIC ACID [Concomitant]

REACTIONS (9)
  - Gallbladder disorder [None]
  - Biliary dyskinesia [None]
  - Cholecystitis [None]
  - Injury [None]
  - Chest pain [None]
  - Back pain [None]
  - Emotional distress [None]
  - Anxiety [None]
  - Psychological trauma [None]
